FAERS Safety Report 7929972-5 (Version None)
Quarter: 2011Q4

REPORT INFORMATION
  Report Type: 
  Country: None (occurrence: None)
  Receive Date: 20111121
  Receipt Date: 20111117
  Transmission Date: 20120403
  Serious: Yes (Life-Threatening, Other)
  Sender: FDA-Public Use
  Company Number: JP-SANOFI-AVENTIS-2011SA034865

PATIENT
  Age: 72 Year
  Sex: Female
  Weight: 40 kg

DRUGS (12)
  1. DEXAMETHASONE [Concomitant]
     Indication: PREMEDICATION
     Route: 041
     Dates: start: 20101108, end: 20110418
  2. ELASPOL [Concomitant]
     Indication: INFLAMMATION
     Route: 041
     Dates: start: 20110509
  3. ANTITHROMBIN III [Concomitant]
     Indication: DISSEMINATED INTRAVASCULAR COAGULATION
     Route: 041
     Dates: start: 20110502, end: 20110505
  4. IMMUNE GLOBULIN INTRAVENOUS (HUMAN) [Concomitant]
     Indication: HYPOALBUMINAEMIA
     Route: 041
     Dates: start: 20110502, end: 20110504
  5. NOREPINEPHRINE BITARTRATE [Concomitant]
     Indication: HYPOTENSION
     Route: 041
     Dates: start: 20110502, end: 20110511
  6. POLARAMINE [Concomitant]
     Indication: PREMEDICATION
     Route: 041
     Dates: start: 20101108, end: 20110418
  7. OMEPRAZOLE [Concomitant]
     Indication: ULCER
     Route: 048
     Dates: start: 20110502, end: 20110511
  8. OXALIPLATIN [Suspect]
     Indication: COLON CANCER
     Route: 041
     Dates: start: 20101108, end: 20101108
  9. OXALIPLATIN [Suspect]
     Route: 041
     Dates: start: 20110418, end: 20110418
  10. GIMERACIL/OTERACIL POTASSIUM/TEGAFUR [Suspect]
     Indication: COLON CANCER
     Route: 048
     Dates: start: 20101108, end: 20101122
  11. GIMERACIL/OTERACIL POTASSIUM/TEGAFUR [Suspect]
     Route: 048
     Dates: start: 20110418, end: 20110502
  12. ZOSYN [Concomitant]
     Indication: INFECTION
     Route: 041
     Dates: start: 20110502, end: 20110507

REACTIONS (7)
  - CEREBRAL HAEMORRHAGE [None]
  - ASPIRATION [None]
  - HAEMOGLOBIN DECREASED [None]
  - PNEUMONIA [None]
  - PLATELET COUNT DECREASED [None]
  - RESPIRATORY FAILURE [None]
  - DISSEMINATED INTRAVASCULAR COAGULATION [None]
